FAERS Safety Report 14157314 (Version 2)
Quarter: 2017Q4

REPORT INFORMATION
  Report Type: Spontaneous
  Country: US (occurrence: US)
  Receive Date: 20171103
  Receipt Date: 20171130
  Transmission Date: 20180321
  Serious: No
  Sender: FDA-Public Use
  Company Number: US-GLAXOSMITHKLINE-US2017167440

PATIENT
  Sex: Female
  Weight: 57.5 kg

DRUGS (1)
  1. BENLYSTA [Suspect]
     Active Substance: BELIMUMAB
     Indication: SYSTEMIC LUPUS ERYTHEMATOSUS
     Dosage: 600 MG, CYC (EVERY4 WEEKS)
     Route: 042
     Dates: start: 201611

REACTIONS (2)
  - Drug ineffective [Unknown]
  - Arthritis [Unknown]
